FAERS Safety Report 5854916-X (Version None)
Quarter: 2008Q3

REPORT INFORMATION
  Report Type: 
  Country: None (occurrence: None)
  Receive Date: 20080822
  Receipt Date: 20080311
  Transmission Date: 20090109
  Serious: No
  Sender: FDA-Public Use
  Company Number: US-ABBOTT-08P-163-0441993-00

PATIENT
  Sex: Female

DRUGS (4)
  1. SYNTHROID [Suspect]
     Indication: HYPOTHYROIDISM
     Dates: start: 20030101
  2. SYNTHROID [Suspect]
     Route: 048
     Dates: start: 20071226
  3. SYNTHROID [Suspect]
     Route: 048
     Dates: start: 20080211
  4. SYNTHROID [Suspect]
     Route: 048
     Dates: start: 20080308, end: 20080308

REACTIONS (8)
  - EARLY MORNING AWAKENING [None]
  - ERUCTATION [None]
  - MUSCLE SPASMS [None]
  - NAUSEA [None]
  - PALPITATIONS [None]
  - PARAESTHESIA [None]
  - VOMITING [None]
  - WRONG DRUG ADMINISTERED [None]
